FAERS Safety Report 15859169 (Version 1)
Quarter: 2018Q4

REPORT INFORMATION
  Report Type: Spontaneous
  Country: US (occurrence: US)
  Receive Date: 20181231
  Receipt Date: 20181231
  Transmission Date: 20190205
  Serious: No
  Sender: FDA-Public Use
  Company Number: None

PATIENT
  Age: 39 Year
  Sex: Female

DRUGS (1)
  1. TENOFOVIR TAB [Suspect]
     Active Substance: TENOFOVIR
     Route: 048
     Dates: start: 201811

REACTIONS (5)
  - Feeling abnormal [None]
  - Bone pain [None]
  - Myalgia [None]
  - Insomnia [None]
  - Weight decreased [None]

NARRATIVE: CASE EVENT DATE: 20181230
